FAERS Safety Report 8392701 (Version 8)
Quarter: 2012Q4

REPORT INFORMATION
  Report Type: Report from Study
  Country: FR (occurrence: FR)
  Receive Date: 20120206
  Receipt Date: 20121113
  Transmission Date: 20130627
  Serious: Yes (Life-Threatening)
  Sender: FDA-Public Use
  Company Number: FR-ROCHE-1036956

PATIENT
  Age: 84 Year
  Sex: Male
  Weight: 70 kg

DRUGS (7)
  1. VISMODEGIB [Suspect]
     Indication: BASAL CELL CARCINOMA
     Dosage: last dose prior to the sae on 15/jan/2012
     Route: 048
     Dates: start: 20111207, end: 20120120
  2. PARACETAMOL [Concomitant]
     Indication: PAIN
     Route: 065
     Dates: start: 20111201
  3. PARACETAMOL [Concomitant]
     Route: 065
     Dates: start: 20120101
  4. GLUCOR [Concomitant]
     Indication: DIABETES MELLITUS
     Route: 065
     Dates: start: 198001
  5. AMAREL [Concomitant]
     Indication: DIABETES MELLITUS
     Route: 065
     Dates: start: 198001
  6. ZOCOR [Concomitant]
     Indication: DYSLIPIDAEMIA
     Route: 065
     Dates: start: 200201
  7. MOPRAL (FRANCE) [Concomitant]
     Indication: DUODENAL ULCER
     Route: 065
     Dates: start: 199601

REACTIONS (1)
  - Hepatitis [Recovered/Resolved]
